FAERS Safety Report 24719647 (Version 1)
Quarter: 2024Q4

REPORT INFORMATION
  Report Type: Spontaneous
  Country: US (occurrence: US)
  Receive Date: 20241211
  Receipt Date: 20241211
  Transmission Date: 20250115
  Serious: No
  Sender: ROCHE
  Company Number: US-ROCHE-10000151485

PATIENT
  Age: 77 Year
  Sex: Female

DRUGS (1)
  1. ERIVEDGE [Suspect]
     Active Substance: VISMODEGIB
     Indication: Basal cell carcinoma
     Dosage: FREQUENCY: TAKE 1 CAPSULE BY MOUTH ON SATURDAY AND SUNDAY.
     Route: 048

REACTIONS (1)
  - Diarrhoea [Unknown]
